FAERS Safety Report 19920073 (Version 2)
Quarter: 2021Q4

REPORT INFORMATION
  Report Type: Spontaneous
  Country: TW (occurrence: TW)
  Receive Date: 20211006
  Receipt Date: 20211103
  Transmission Date: 20220304
  Serious: Yes (Hospitalization, Other)
  Sender: FDA-Public Use
  Company Number: TW-SUN PHARMACEUTICAL INDUSTRIES LTD-2021RR-313349

PATIENT
  Age: 45 Year
  Sex: Male

DRUGS (2)
  1. OCTREOTIDE [Suspect]
     Active Substance: OCTREOTIDE
     Indication: Metastases to liver
     Dosage: 20 MILLIGRAM, 1DOSE/28DAYS
     Route: 065
  2. EVEROLIMUS [Suspect]
     Active Substance: EVEROLIMUS
     Indication: Metastases to liver
     Dosage: 5 MILLIGRAM, BID
     Route: 065

REACTIONS (3)
  - Therapeutic product effect incomplete [Unknown]
  - Hepatitis B [Unknown]
  - Hepatic failure [Unknown]
